FAERS Safety Report 25771581 (Version 1)
Quarter: 2025Q3

REPORT INFORMATION
  Report Type: Spontaneous
  Country: US (occurrence: US)
  Receive Date: 20250908
  Receipt Date: 20250908
  Transmission Date: 20251021
  Serious: No
  Sender: DOMPE FARMACEUTICI
  Company Number: US-FARMAPROD-202504-1445

PATIENT
  Sex: Female
  Weight: 96.16 kg

DRUGS (33)
  1. OXERVATE [Suspect]
     Active Substance: CENEGERMIN-BKBJ
     Indication: Neurotrophic keratopathy
     Route: 047
     Dates: start: 20230420
  2. OXERVATE [Suspect]
     Active Substance: CENEGERMIN-BKBJ
     Indication: Hypoaesthesia eye
     Route: 047
  3. OXERVATE [Suspect]
     Active Substance: CENEGERMIN-BKBJ
     Indication: Ulcerative keratitis
     Route: 047
  4. OXERVATE [Suspect]
     Active Substance: CENEGERMIN-BKBJ
     Route: 047
  5. VITAMIN C [Concomitant]
     Active Substance: ASCORBIC ACID
  6. PREDNISONE [Concomitant]
     Active Substance: PREDNISONE
  7. MYCOPHENOLATE MOFETIL [Concomitant]
     Active Substance: MYCOPHENOLATE MOFETIL
  8. TYRVAYA [Concomitant]
     Active Substance: VARENICLINE TARTRATE
  9. TOBRADEX [Concomitant]
     Active Substance: DEXAMETHASONE\TOBRAMYCIN
  10. NYSTATIN [Concomitant]
     Active Substance: NYSTATIN
  11. WARFARIN SODIUM [Concomitant]
     Active Substance: WARFARIN SODIUM
  12. HERBALS\PLANTAGO OVATA SEED COAT [Concomitant]
     Active Substance: HERBALS\PLANTAGO OVATA SEED COAT
  13. OXYBUTYNIN CHLORIDE [Concomitant]
     Active Substance: OXYBUTYNIN CHLORIDE
  14. OMEGA-3 ACIDS [Concomitant]
     Active Substance: OMEGA-3 FATTY ACIDS
  15. NYSTATIN AND TRIAMCINOLONE [Concomitant]
     Active Substance: NYSTATIN\TRIAMCINOLONE ACETONIDE
  16. NITROGLYCERIN [Concomitant]
     Active Substance: NITROGLYCERIN
  17. VITAMINS [Concomitant]
     Active Substance: VITAMINS
  18. CAMPHOR\MENTHOL [Concomitant]
     Active Substance: CAMPHOR\MENTHOL
  19. LOSARTAN POTASSIUM [Concomitant]
     Active Substance: LOSARTAN POTASSIUM
  20. ACETAMINOPHEN\HYDROCODONE [Concomitant]
     Active Substance: ACETAMINOPHEN\HYDROCODONE
  21. GYMNEMA SYLVESTRIS LEAF [Concomitant]
  22. GLIPIZIDE [Concomitant]
     Active Substance: GLIPIZIDE
  23. FUROSEMIDE [Concomitant]
     Active Substance: FUROSEMIDE
  24. FENUGREEK SEED [Concomitant]
     Active Substance: FENUGREEK SEED
  25. ERYTHROMYCIN [Concomitant]
     Active Substance: ERYTHROMYCIN
  26. COLCHICINE [Concomitant]
     Active Substance: COLCHICINE
  27. CALCIUM\CHOLECALCIFEROL [Concomitant]
     Active Substance: CALCIUM\CHOLECALCIFEROL
  28. ATORVASTATIN CALCIUM [Concomitant]
     Active Substance: ATORVASTATIN CALCIUM
  29. AMLODIPINE BESYLATE [Concomitant]
     Active Substance: AMLODIPINE BESYLATE
  30. ALLOPURINOL [Concomitant]
     Active Substance: ALLOPURINOL
  31. TIMOLOL MALEATE [Concomitant]
     Active Substance: TIMOLOL MALEATE
  32. TOBRAMYCIN [Concomitant]
     Active Substance: TOBRAMYCIN
  33. PREDNISOLONE-NEPAFENAC [Concomitant]

REACTIONS (1)
  - Wrong technique in product usage process [Unknown]
